FAERS Safety Report 6054463-9 (Version None)
Quarter: 2009Q1

REPORT INFORMATION
  Report Type: 
  Country: None (occurrence: None)
  Receive Date: 20090123
  Receipt Date: 20090123
  Transmission Date: 20090719
  Serious: Yes (Other)
  Sender: FDA-Public Use
  Company Number: None

PATIENT
  Age: 53 Year
  Sex: Female
  Weight: 58.9676 kg

DRUGS (1)
  1. REMICADE [Suspect]
     Indication: RHEUMATOID ARTHRITIS
     Dosage: IV DRIP
     Route: 041
     Dates: start: 20080626, end: 20080626

REACTIONS (15)
  - AMNESIA [None]
  - ASTHENIA [None]
  - CEREBROVASCULAR ACCIDENT [None]
  - CONVULSION [None]
  - DIPLOPIA [None]
  - FATIGUE [None]
  - HEMIPARESIS [None]
  - INFUSION RELATED REACTION [None]
  - NAUSEA [None]
  - OPHTHALMOPLEGIA [None]
  - PHARYNGEAL OEDEMA [None]
  - TINNITUS [None]
  - URTICARIA [None]
  - VERTIGO [None]
  - VISION BLURRED [None]
